FAERS Safety Report 4624090-6 (Version None)
Quarter: 2005Q1

REPORT INFORMATION
  Report Type: 
  Country: None (occurrence: None)
  Receive Date: 20050330
  Receipt Date: 20050330
  Transmission Date: 20050727
  Serious: Yes (Death)
  Sender: FDA-Public Use
  Company Number: None

PATIENT
  Age: 59 Year
  Sex: Male

DRUGS (11)
  1. NEURONTIN [Suspect]
     Indication: DEPRESSION
     Dosage: 900MG
     Dates: start: 20010201, end: 20030301
  2. PLAVIX [Concomitant]
  3. MICARDIS [Concomitant]
  4. ZOCOR [Concomitant]
  5. ST. JOSEPH ASPIRIN [Concomitant]
  6. ALPRAZOLAM [Concomitant]
  7. TEMAZEPAM [Concomitant]
  8. SERZONE [Concomitant]
  9. EFFEXOR [Concomitant]
  10. ANDROGEL [Concomitant]
  11. NIASPAN [Concomitant]

REACTIONS (2)
  - COMPLETED SUICIDE [None]
  - GUN SHOT WOUND [None]
